FAERS Safety Report 6861922-5 (Version None)
Quarter: 2010Q3

REPORT INFORMATION
  Report Type: 
  Country: None (occurrence: None)
  Receive Date: 20100721
  Receipt Date: 20100716
  Transmission Date: 20110219
  Serious: Yes (Death)
  Sender: FDA-Public Use
  Company Number: TR-ELI_LILLY_AND_COMPANY-TR201007003787

PATIENT
  Age: 69 Year
  Sex: Female

DRUGS (3)
  1. HUMALOG [Suspect]
     Indication: DIABETES MELLITUS
     Dosage: 30 U, DAILY (1/D) (10 U/MORNING AND 20 U/EVENING)
     Route: 058
     Dates: start: 20100214, end: 20100414
  2. HUMALOG [Suspect]
     Dosage: 30 U, DAILY (1/D) (10 U/MORNING AND 20 U/EVENING)
     Route: 058
     Dates: start: 20100214, end: 20100414
  3. BELOC /00376903/ [Concomitant]
     Indication: ARRHYTHMIA
     Dosage: UNK, DAILY (1/D)
     Route: 048
     Dates: end: 20100414

REACTIONS (1)
  - CARDIAC DISORDER [None]
